FAERS Safety Report 8537269 (Version 2)
Quarter: 2013Q1

REPORT INFORMATION
  Report Type: Report from Study
  Country: SE (occurrence: SE)
  Receive Date: 20120430
  Receipt Date: 20130219
  Transmission Date: 20140127
  Serious: Yes (Life-Threatening, Hospitalization, Other)
  Sender: FDA-Public Use
  Company Number: SE-ABBOTT-12P-150-0928429-00

PATIENT
  Age: 60 None
  Sex: Male

DRUGS (13)
  1. LAKTULOS [Concomitant]
     Indication: PRODUCT USED FOR UNKNOWN INDICATION
  2. INNOHEP 4500 E [Concomitant]
     Indication: PRODUCT USED FOR UNKNOWN INDICATION
     Dosage: AT NIGHT
  3. ARANESP [Concomitant]
     Indication: PRODUCT USED FOR UNKNOWN INDICATION
     Route: 058
  4. ALFADIL [Concomitant]
     Indication: PRODUCT USED FOR UNKNOWN INDICATION
     Dosage: AT NIGHT
  5. FUROSEMID [Concomitant]
     Indication: PRODUCT USED FOR UNKNOWN INDICATION
  6. AMLODIPIN [Concomitant]
     Indication: PRODUCT USED FOR UNKNOWN INDICATION
  7. ENALAPRIL 20 MG/12.5 MG [Concomitant]
     Indication: PRODUCT USED FOR UNKNOWN INDICATION
  8. SIMVASTATIN [Concomitant]
     Indication: PRODUCT USED FOR UNKNOWN INDICATION
  9. OXYNORM [Concomitant]
     Indication: PRODUCT USED FOR UNKNOWN INDICATION
     Dosage: 1 CAPSULE AS NEEDED
  10. TARGINIQ DEPOT 5 MG/2.5 MG [Concomitant]
     Indication: PRODUCT USED FOR UNKNOWN INDICATION
  11. PANODIL [Concomitant]
     Indication: PRODUCT USED FOR UNKNOWN INDICATION
  12. ZEMPLAR CAPSULES [Suspect]
     Indication: RENAL FAILURE CHRONIC
     Route: 048
     Dates: start: 20110812
  13. LAXOBERAL [Concomitant]
     Indication: PRODUCT USED FOR UNKNOWN INDICATION
     Dosage: AT NIGHT

REACTIONS (4)
  - Back pain [Recovering/Resolving]
  - Aortic aneurysm rupture [Recovering/Resolving]
  - Blood creatinine decreased [Unknown]
  - Poor peripheral circulation [Unknown]
